FAERS Safety Report 21529186 (Version 2)
Quarter: 2022Q4

REPORT INFORMATION
  Report Type: Spontaneous
  Country: GB (occurrence: GB)
  Receive Date: 20221031
  Receipt Date: 20221106
  Transmission Date: 20230113
  Serious: Yes (Death, Life-Threatening, Hospitalization, Other)
  Sender: FDA-Public Use
  Company Number: GB-MHRA-MED-202210251442294580-LNVDH

PATIENT
  Age: 79 Year
  Sex: Male
  Weight: 75 kg

DRUGS (19)
  1. LENALIDOMIDE [Suspect]
     Active Substance: LENALIDOMIDE
     Indication: Plasma cell myeloma
     Dosage: 10MG OD 21 DAYS
     Route: 065
     Dates: start: 20220913, end: 20221023
  2. ACYCLOVIR [Concomitant]
     Active Substance: ACYCLOVIR
  3. CHOLECALCIFEROL [Concomitant]
     Active Substance: CHOLECALCIFEROL
  4. TESTOSTERONE [Concomitant]
     Active Substance: TESTOSTERONE
  5. METOCLOPRAMIDE [Concomitant]
     Active Substance: METOCLOPRAMIDE
     Indication: Prophylaxis of nausea and vomiting
  6. METOCLOPRAMIDE [Concomitant]
     Active Substance: METOCLOPRAMIDE
     Indication: Vomiting
  7. IXAZOMIB [Concomitant]
     Active Substance: IXAZOMIB
     Indication: Plasma cell myeloma
  8. DEXAMETHASONE [Concomitant]
     Active Substance: DEXAMETHASONE
     Indication: Prophylaxis of nausea and vomiting
  9. DEXAMETHASONE [Concomitant]
     Active Substance: DEXAMETHASONE
     Indication: Vomiting
  10. CETIRIZINE [Concomitant]
     Active Substance: CETIRIZINE HYDROCHLORIDE
     Indication: Rash
  11. FUROSEMIDE [Concomitant]
     Active Substance: FUROSEMIDE
  12. RAMIPRIL [Concomitant]
     Active Substance: RAMIPRIL
  13. BISOPROLOL [Concomitant]
     Active Substance: BISOPROLOL
  14. CODEINE [Concomitant]
     Active Substance: CODEINE
     Indication: Plasma cell myeloma
  15. GABAPENTIN [Concomitant]
     Active Substance: GABAPENTIN
  16. ACETAMINOPHEN [Concomitant]
     Active Substance: ACETAMINOPHEN
     Indication: Prophylaxis of nausea and vomiting
  17. ASPIRIN [Concomitant]
     Active Substance: ASPIRIN
  18. LERCANIDIPINE [Concomitant]
     Active Substance: LERCANIDIPINE
  19. FLUCLOXACILLIN [Concomitant]
     Active Substance: FLUCLOXACILLIN

REACTIONS (4)
  - Stevens-Johnson syndrome [Not Recovered/Not Resolved]
  - Anaemia [Unknown]
  - Pulmonary oedema [Unknown]
  - Cardiac arrest [Fatal]

NARRATIVE: CASE EVENT DATE: 20221001
